FAERS Safety Report 18476683 (Version 1)
Quarter: 2020Q4

REPORT INFORMATION
  Report Type: Spontaneous
  Country: US (occurrence: US)
  Receive Date: 20201107
  Receipt Date: 20201107
  Transmission Date: 20210114
  Serious: No
  Sender: FDA-Public Use
  Company Number: US-CELGENEUS-USA-20201100063

PATIENT
  Sex: Female

DRUGS (2)
  1. POMALYST [Suspect]
     Active Substance: POMALIDOMIDE
     Indication: OFF LABEL USE
     Dosage: 3 MILLIGRAM
     Route: 048
     Dates: start: 201909
  2. POMALYST [Suspect]
     Active Substance: POMALIDOMIDE
     Indication: PLASMACYTOMA
     Dosage: 4 MILLIGRAM
     Route: 048
     Dates: start: 201908

REACTIONS (1)
  - Paraesthesia [Unknown]
